FAERS Safety Report 15211215 (Version 1)
Quarter: 2018Q3

REPORT INFORMATION
  Report Type: Spontaneous
  Country: US (occurrence: US)
  Receive Date: 20180630
  Receipt Date: 20180630
  Transmission Date: 20181010
  Serious: Yes (Life-Threatening, Hospitalization)
  Sender: FDA-Public Use
  Company Number: None

PATIENT
  Age: 17 Year
  Sex: Male
  Weight: 76.05 kg

DRUGS (4)
  1. MYORISAN [Suspect]
     Active Substance: ISOTRETINOIN
     Indication: ACNE
     Dosage: ?          QUANTITY:1 CAPSULE(S);?
     Route: 048
  2. LAMOTRIGINE. [Concomitant]
     Active Substance: LAMOTRIGINE
  3. BENADRYL [Concomitant]
     Active Substance: DIPHENHYDRAMINE HYDROCHLORIDE
  4. RISPERIDONE. [Concomitant]
     Active Substance: RISPERIDONE

REACTIONS (8)
  - Insomnia [None]
  - Suicidal ideation [None]
  - Hallucination, visual [None]
  - Irritability [None]
  - Depression [None]
  - Paranoia [None]
  - Impulsive behaviour [None]
  - Anger [None]

NARRATIVE: CASE EVENT DATE: 20180618
